FAERS Safety Report 17946471 (Version 6)
Quarter: 2020Q3

REPORT INFORMATION
  Report Type: Report from Study
  Country: BE (occurrence: BE)
  Receive Date: 20200625
  Receipt Date: 20200812
  Transmission Date: 20201103
  Serious: Yes (Death, Hospitalization, Other)
  Sender: FDA-Public Use
  Company Number: BE-B.I. PHARMACEUTICALS,INC./RIDGEFIELD-2019-BI-011298

PATIENT
  Age: 67 Year
  Sex: Female
  Weight: 35.5 kg

DRUGS (5)
  1. NINTEDANIB [Suspect]
     Active Substance: NINTEDANIB
     Indication: SYSTEMIC SCLERODERMA
     Route: 048
     Dates: start: 20181109, end: 20190320
  2. LASIX [Suspect]
     Active Substance: FUROSEMIDE
     Route: 042
     Dates: start: 20190402, end: 20190402
  3. NINTEDANIB [Suspect]
     Active Substance: NINTEDANIB
     Route: 048
     Dates: start: 20191213, end: 20200611
  4. NINTEDANIB [Suspect]
     Active Substance: NINTEDANIB
     Indication: INTERSTITIAL LUNG DISEASE
     Route: 048
     Dates: start: 20190412, end: 20191211
  5. LASIX [Suspect]
     Active Substance: FUROSEMIDE
     Indication: PLEURAL EFFUSION
     Route: 042
     Dates: start: 20190329, end: 20190329

REACTIONS (20)
  - Pneumonia [Recovered/Resolved]
  - Right ventricular failure [Not Recovered/Not Resolved]
  - Pulmonary hypertension [Not Recovered/Not Resolved]
  - Pyrexia [Recovered/Resolved]
  - Hypernatraemia [Recovered/Resolved]
  - Vomiting [Recovered/Resolved]
  - Pleural effusion [Recovered/Resolved]
  - Hypoxia [Recovered/Resolved]
  - Influenza [Recovered/Resolved]
  - Hypokalaemia [Recovered/Resolved]
  - Chest pain [Recovered/Resolved]
  - General physical health deterioration [Fatal]
  - Hypotension [Recovered/Resolved]
  - Diarrhoea [Recovered/Resolved]
  - Acute respiratory failure [Not Recovered/Not Resolved]
  - Enteritis [Recovered/Resolved]
  - Atrial fibrillation [Not Recovered/Not Resolved]
  - Diarrhoea [Recovered/Resolved]
  - Interstitial lung disease [Not Recovered/Not Resolved]
  - Liver injury [Not Recovered/Not Resolved]

NARRATIVE: CASE EVENT DATE: 20190313
